FAERS Safety Report 19732681 (Version 1)
Quarter: 2021Q3

REPORT INFORMATION
  Report Type: Spontaneous
  Country: JP (occurrence: JP)
  Receive Date: 20210823
  Receipt Date: 20210823
  Transmission Date: 20211014
  Serious: Yes (Hospitalization)
  Sender: FDA-Public Use
  Company Number: JP-SCIEGENPHARMA-2021SCILIT00676

PATIENT
  Age: 73 Year
  Sex: Male
  Weight: 50 kg

DRUGS (4)
  1. PREGABALIN. [Suspect]
     Active Substance: PREGABALIN
     Route: 065
  2. PREGABALIN. [Suspect]
     Active Substance: PREGABALIN
     Indication: PAIN IN EXTREMITY
     Route: 065
  3. GLUCOSE [Interacting]
     Active Substance: DEXTROSE
     Indication: HYPOGLYCAEMIA
     Route: 010
  4. GLUCOSE [Interacting]
     Active Substance: DEXTROSE
     Route: 065

REACTIONS (1)
  - Hypoglycaemia [Recovered/Resolved]
